FAERS Safety Report 5142403-6 (Version None)
Quarter: 2006Q4

REPORT INFORMATION
  Report Type: 
  Country: None (occurrence: None)
  Receive Date: 20061102
  Receipt Date: 20061023
  Transmission Date: 20070319
  Serious: Yes (Other)
  Sender: FDA-Public Use
  Company Number: US-BRISTOL-MYERS SQUIBB COMPANY-13556964

PATIENT
  Age: 5 Year
  Sex: Male

DRUGS (8)
  1. VINCRISTINE SULFATE [Suspect]
     Indication: PRIMITIVE NEUROECTODERMAL TUMOUR
  2. CYCLOPHOSPHAMIDE [Suspect]
     Indication: PRIMITIVE NEUROECTODERMAL TUMOUR
  3. CARBOPLATIN [Suspect]
  4. ETOPOSIDE [Suspect]
  5. RADIOTHERAPY [Concomitant]
  6. THIOTEPA [Concomitant]
  7. GRANULOCYTE CSF [Concomitant]
  8. HEMATOPOETIC PROGENITOR CELLS HUMAN [Concomitant]

REACTIONS (2)
  - MYELITIS [None]
  - MYELITIS TRANSVERSE [None]
